FAERS Safety Report 10664886 (Version 2)
Quarter: 2015Q3

REPORT INFORMATION
  Report Type: Report from Study
  Country: CA (occurrence: CA)
  Receive Date: 20141219
  Receipt Date: 20150720
  Transmission Date: 20151125
  Serious: Yes (Other)
  Sender: FDA-Public Use
  Company Number: CA-JNJFOC-20141208561

PATIENT
  Sex: Male
  Weight: 96 kg

DRUGS (6)
  1. ATIVAN [Concomitant]
     Active Substance: LORAZEPAM
     Route: 065
  2. EFFEXOR [Concomitant]
     Active Substance: VENLAFAXINE HYDROCHLORIDE
     Route: 065
  3. REMICADE [Suspect]
     Active Substance: INFLIXIMAB
     Indication: CROHN^S DISEASE
     Dosage: 43 RD INFUSION
     Route: 042
     Dates: start: 20080212
  4. METFORMIN [Concomitant]
     Active Substance: METFORMIN HYDROCHLORIDE
     Route: 065
  5. REMICADE [Suspect]
     Active Substance: INFLIXIMAB
     Indication: CROHN^S DISEASE
     Dosage: 43 RD INFUSION
     Route: 042
     Dates: start: 20140919
  6. REMICADE [Suspect]
     Active Substance: INFLIXIMAB
     Indication: CROHN^S DISEASE
     Route: 042
     Dates: start: 2007

REACTIONS (2)
  - Pregnancy of partner [Not Recovered/Not Resolved]
  - Pancreatitis [Unknown]

NARRATIVE: CASE EVENT DATE: 2012
